FAERS Safety Report 6520912-2 (Version None)
Quarter: 2009Q4

REPORT INFORMATION
  Report Type: 
  Country: None (occurrence: None)
  Receive Date: 20091229
  Receipt Date: 20091217
  Transmission Date: 20100525
  Serious: Yes (Other)
  Sender: FDA-Public Use
  Company Number: JP-PFIZER INC-2009312167

PATIENT
  Age: 61 Year
  Sex: Male

DRUGS (1)
  1. ADRIACIN [Suspect]
     Indication: BLADDER CANCER
     Dosage: UNK
     Route: 043
     Dates: start: 20091202

REACTIONS (1)
  - ALLERGIC CYSTITIS [None]
